FAERS Safety Report 4602304-6 (Version None)
Quarter: 2005Q1

REPORT INFORMATION
  Report Type: 
  Country: None (occurrence: None)
  Receive Date: 20050223
  Receipt Date: 20050103
  Transmission Date: 20050727
  Serious: No
  Sender: FDA-Public Use
  Company Number: 211449

PATIENT
  Age: 59 Year
  Sex: Male
  Weight: 102 kg

DRUGS (5)
  1. RAPTIVA [Suspect]
     Indication: PSORIASIS
     Dosage: 101 MG, 1/WEEK, SUBCUTANEOUS
     Route: 058
     Dates: start: 20041101
  2. SINGULAIR [Concomitant]
  3. PRINIVIL [Concomitant]
  4. PREDNISONE [Concomitant]
  5. VICODIN (HYDROCODONE BITARTRATE, ACETAMINOPHEN) [Concomitant]

REACTIONS (1)
  - PSORIASIS [None]
